FAERS Safety Report 24018220 (Version 1)
Quarter: 2024Q2

REPORT INFORMATION
  Report Type: Spontaneous
  Country: CN (occurrence: CN)
  Receive Date: 20240627
  Receipt Date: 20240627
  Transmission Date: 20240715
  Serious: Yes (Other)
  Sender: FDA-Public Use
  Company Number: None

PATIENT
  Age: 31 Year
  Sex: Female
  Weight: 60 kg

DRUGS (4)
  1. CYCLOPHOSPHAMIDE [Suspect]
     Active Substance: CYCLOPHOSPHAMIDE
     Indication: Breast cancer female
     Dosage: 0.85 G, ONE TIME IN ONE DAY, DILUTED WITH 500 ML OF 5% GLUCOSE, (START TIME: AT 12:32) (ROUTE: INJEC
     Route: 042
     Dates: start: 20240607, end: 20240607
  2. EPIRUBICIN HYDROCHLORIDE [Suspect]
     Active Substance: EPIRUBICIN HYDROCHLORIDE
     Indication: Breast cancer female
     Dosage: 120 MG, ONE TIME IN ONE DAY, DILUTED WITH 500 ML OF 0.9% SODIUM CHLORIDE, (START TIME: AT 12:32) (RO
     Route: 042
     Dates: start: 20240607, end: 20240607
  3. SODIUM CHLORIDE [Suspect]
     Active Substance: SODIUM CHLORIDE
     Indication: Medication dilution
     Dosage: 250 ML, ONE TIME IN ONE DAY, USED TO DILUTE 120 MG OF EPIRUBICIN HYDROCHLORIDE, (START TIME: AT 12:3
     Route: 042
     Dates: start: 20240607, end: 20240607
  4. DEXTROSE [Suspect]
     Active Substance: DEXTROSE\DEXTROSE MONOHYDRATE
     Indication: Medication dilution
     Dosage: 500 ML, ONE TIME IN ONE DAY, USED TO DILUTE 0.85 G OF CYCLOPHOSPHAMIDE, (START TIME: AT 12:32) (ROUT
     Route: 042
     Dates: start: 20240607, end: 20240607

REACTIONS (6)
  - Conjunctival hyperaemia [Recovering/Resolving]
  - Conjunctival oedema [Recovering/Resolving]
  - Nausea [Recovering/Resolving]
  - Vomiting [Recovering/Resolving]
  - Palpitations [Recovering/Resolving]
  - Chest discomfort [Recovering/Resolving]

NARRATIVE: CASE EVENT DATE: 20240608
